FAERS Safety Report 6193096-0 (Version None)
Quarter: 2009Q2

REPORT INFORMATION
  Report Type: 
  Country: None (occurrence: None)
  Receive Date: 20090518
  Receipt Date: 20090515
  Transmission Date: 20091009
  Serious: Yes (Death)
  Sender: FDA-Public Use
  Company Number: CA-WYE-G03537909

PATIENT
  Sex: Male

DRUGS (1)
  1. SIROLIMUS [Suspect]
     Route: 048
     Dates: start: 20041004, end: 20090301

REACTIONS (1)
  - DEATH [None]
